FAERS Safety Report 12622226 (Version 1)
Quarter: 2016Q3

REPORT INFORMATION
  Report Type: Spontaneous
  Country: US (occurrence: US)
  Receive Date: 20160804
  Receipt Date: 20160804
  Transmission Date: 20161109
  Serious: Yes (Other)
  Sender: FDA-Public Use
  Company Number: US-MYLANLABS-2016M1031755

PATIENT

DRUGS (2)
  1. ZOLEDRONIC ACID [Suspect]
     Active Substance: ZOLEDRONIC ACID
     Indication: OFF LABEL USE
  2. ZOLEDRONIC ACID [Suspect]
     Active Substance: ZOLEDRONIC ACID
     Indication: COMPRESSION FRACTURE
     Dosage: 5 MG
     Route: 041

REACTIONS (3)
  - Neuritis [Recovering/Resolving]
  - Idiopathic orbital inflammation [Recovering/Resolving]
  - Retinopathy [Recovering/Resolving]
